FAERS Safety Report 7245135-3 (Version None)
Quarter: 2011Q1

REPORT INFORMATION
  Report Type: 
  Country: None (occurrence: None)
  Receive Date: 20110126
  Receipt Date: 20110117
  Transmission Date: 20110831
  Serious: Yes (Life-Threatening, Hospitalization)
  Sender: FDA-Public Use
  Company Number: JP-CELGENEUS-087-21880-10111721

PATIENT
  Age: 76 Year
  Sex: Male
  Weight: 56 kg

DRUGS (14)
  1. MEVALOTIN [Suspect]
     Route: 048
     Dates: start: 20090211, end: 20101112
  2. LENDORMIN D [Concomitant]
     Route: 048
     Dates: start: 20101108
  3. METHYLCOBAL [Concomitant]
     Route: 048
     Dates: start: 20101108
  4. BAKTAR [Concomitant]
     Indication: MULTIPLE MYELOMA
     Route: 048
     Dates: start: 20101108, end: 20101109
  5. DECADRON [Concomitant]
     Indication: MULTIPLE MYELOMA
     Route: 041
     Dates: start: 20101108, end: 20101108
  6. ZYLORIC [Concomitant]
     Route: 048
     Dates: start: 20101108
  7. MAXIPIME [Concomitant]
     Indication: MULTIPLE MYELOMA
     Route: 051
     Dates: start: 20101122, end: 20101122
  8. CRAVIT [Concomitant]
     Indication: MULTIPLE MYELOMA
     Route: 048
     Dates: start: 20101120, end: 20101122
  9. REVLIMID [Suspect]
     Indication: MULTIPLE MYELOMA
     Route: 048
     Dates: start: 20101108, end: 20101113
  10. MEVALOTIN [Suspect]
     Route: 048
     Dates: start: 20101108, end: 20101113
  11. DIFLUCAN [Concomitant]
     Indication: CRYPTOCOCCOSIS
     Route: 048
     Dates: start: 20101108
  12. WARFARIN [Concomitant]
     Indication: PROPHYLAXIS
     Route: 048
     Dates: start: 20101108, end: 20101115
  13. MAXIPIME [Concomitant]
     Route: 051
     Dates: start: 20101123, end: 20101126
  14. LOXONIN TAPE [Concomitant]
     Route: 065

REACTIONS (1)
  - RHABDOMYOLYSIS [None]
